FAERS Safety Report 4974156-6 (Version None)
Quarter: 2006Q1

REPORT INFORMATION
  Report Type: 
  Country: None (occurrence: None)
  Receive Date: 20060130
  Receipt Date: 20051129
  Transmission Date: 20060701
  Serious: Yes (Death)
  Sender: FDA-Public Use
  Company Number: COT_0262_2005

PATIENT
  Age: 73 Year
  Sex: Male
  Weight: 104.3273 kg

DRUGS (15)
  1. VENTAVIS [Suspect]
     Indication: PULMONARY HYPERTENSION
     Dosage: 5 MCG 6XD IH
     Dates: start: 20050929
  2. IMDUR [Concomitant]
  3. ZAROXOLYN [Concomitant]
  4. ALDACTONE [Concomitant]
  5. LASIX [Concomitant]
  6. PLAVIX [Concomitant]
  7. TOPROL-XL [Concomitant]
  8. K-DUR 10 [Concomitant]
  9. ZOLOFT [Concomitant]
  10. FOLIC ACID [Concomitant]
  11. PREVACID [Concomitant]
  12. ZOCOR [Concomitant]
  13. CARDIZEM [Concomitant]
  14. TRACLEER [Concomitant]
  15. COUMADIN [Concomitant]

REACTIONS (3)
  - CARDIAC FAILURE [None]
  - CONDITION AGGRAVATED [None]
  - PULMONARY HYPERTENSION [None]
